FAERS Safety Report 8464823-4 (Version None)
Quarter: 2012Q2

REPORT INFORMATION
  Report Type: 
  Country: None (occurrence: None)
  Receive Date: 20120618
  Receipt Date: 20120326
  Transmission Date: 20120825
  Serious: Yes (Other)
  Sender: FDA-Public Use
  Company Number: 2012P1040850

PATIENT
  Age: 80 Year
  Sex: Male
  Weight: 82.8268 kg

DRUGS (4)
  1. LEVOTHYROXINE SODIUM [Concomitant]
  2. CARBASPIRIN CALCIUM [Concomitant]
  3. DIGOXIN [Suspect]
     Dosage: 0.125 MG;PO
     Route: 048
     Dates: start: 20111101, end: 20120111
  4. HYDROCORTISONE ACETATE [Concomitant]

REACTIONS (2)
  - NAUSEA [None]
  - ARRHYTHMIA [None]
